FAERS Safety Report 24596337 (Version 2)
Quarter: 2024Q4

REPORT INFORMATION
  Report Type: Spontaneous
  Country: US (occurrence: US)
  Receive Date: 20241110
  Receipt Date: 20241112
  Transmission Date: 20250114
  Serious: No
  Sender: SANOFI AVENTIS
  Company Number: US-SA-2024SA301939

PATIENT
  Sex: Female

DRUGS (20)
  1. KEVZARA [Suspect]
     Active Substance: SARILUMAB
     Indication: Rheumatoid arthritis
     Dosage: 200 MG, QOW
     Route: 058
  2. ALPRAZOLAM [Concomitant]
     Active Substance: ALPRAZOLAM
     Dosage: UNK
  3. AMLODIPINE [Concomitant]
     Active Substance: AMLODIPINE BESYLATE
  4. ATORVASTATIN [Concomitant]
     Active Substance: ATORVASTATIN
  5. BRILINTA [Concomitant]
     Active Substance: TICAGRELOR
  6. FAMOTIDINE [Concomitant]
     Active Substance: FAMOTIDINE
  7. FLUOXETINE [Concomitant]
     Active Substance: FLUOXETINE HYDROCHLORIDE
  8. FOLIC ACID [Concomitant]
     Active Substance: FOLIC ACID
  9. FUROSEMIDE [Concomitant]
     Active Substance: FUROSEMIDE
  10. GABAPENTIN [Concomitant]
     Active Substance: GABAPENTIN
  11. HYDROXYCHLOROQUINE SULFATE [Concomitant]
     Active Substance: HYDROXYCHLOROQUINE SULFATE
  12. IBUPROFEN [Concomitant]
     Active Substance: IBUPROFEN
  13. LEVOTHYROXINE [Concomitant]
     Active Substance: LEVOTHYROXINE
  14. METHOTREXATE [Concomitant]
     Active Substance: METHOTREXATE
  15. METOPROLOL [Concomitant]
     Active Substance: METOPROLOL
  16. OMEPRAZOLE [Concomitant]
     Active Substance: OMEPRAZOLE
  17. OXCARBAZEPINE [Concomitant]
     Active Substance: OXCARBAZEPINE
  18. PREDNISONE [Concomitant]
     Active Substance: PREDNISONE
  19. RAMIPRIL [Concomitant]
     Active Substance: RAMIPRIL
  20. VITAMIN D NOS [Concomitant]
     Active Substance: CHOLECALCIFEROL\ERGOCALCIFEROL

REACTIONS (3)
  - Productive cough [Unknown]
  - Sputum discoloured [Unknown]
  - Sinusitis [Unknown]
